FAERS Safety Report 11788048 (Version 2)
Quarter: 2015Q4

REPORT INFORMATION
  Report Type: Spontaneous
  Country: CA (occurrence: CA)
  Receive Date: 20151130
  Receipt Date: 20151201
  Transmission Date: 20160305
  Serious: Yes (Other)
  Sender: FDA-Public Use
  Company Number: CA-ROCHE-1668928

PATIENT
  Sex: Female

DRUGS (7)
  1. TOPAMAX [Concomitant]
     Active Substance: TOPIRAMATE
  2. ADVAIR HFA [Concomitant]
     Active Substance: FLUTICASONE PROPIONATE\SALMETEROL XINAFOATE
  3. XOLAIR [Suspect]
     Active Substance: OMALIZUMAB
     Indication: ASTHMA
     Route: 058
     Dates: start: 20141029, end: 20150223
  4. IMOVANE [Concomitant]
     Active Substance: ZOPICLONE
  5. CETIRIZINE [Concomitant]
     Active Substance: CETIRIZINE HYDROCHLORIDE
  6. VENTOLIN [Concomitant]
     Active Substance: ALBUTEROL SULFATE
     Route: 065
     Dates: start: 201508
  7. ZOMIG [Concomitant]
     Active Substance: ZOLMITRIPTAN

REACTIONS (13)
  - Inflammation [Unknown]
  - Pain [Unknown]
  - Angioedema [Unknown]
  - Blood immunoglobulin E increased [Unknown]
  - Eosinophil count increased [Unknown]
  - Drug ineffective [Unknown]
  - Malaise [Unknown]
  - Middle insomnia [Unknown]
  - Forced expiratory volume decreased [Unknown]
  - Blood immunoglobulin A increased [Unknown]
  - Chest pain [Unknown]
  - Sneezing [Unknown]
  - Asthma [Unknown]
